FAERS Safety Report 8044840-9 (Version None)
Quarter: 2012Q1

REPORT INFORMATION
  Report Type: 
  Country: None (occurrence: None)
  Receive Date: 20120113
  Receipt Date: 20111229
  Transmission Date: 20120608
  Serious: Yes (Life-Threatening, Hospitalization)
  Sender: FDA-Public Use
  Company Number: FR-CELGENEUS-056-50794-11090427

PATIENT
  Sex: Male
  Weight: 90 kg

DRUGS (16)
  1. VIDAZA [Suspect]
     Dosage: 120 MILLIGRAM
     Route: 041
     Dates: start: 20100906, end: 20100910
  2. VIDAZA [Suspect]
     Dosage: 120 MILLIGRAM
     Route: 058
     Dates: start: 20081119
  3. ADENURIC [Suspect]
     Indication: ARTHRITIS
     Dosage: 80 MILLIGRAM
     Route: 048
     Dates: start: 20100824
  4. CANDESARTAN CILEXETIL AND HYDROCHLOROTHIAZIDE [Concomitant]
     Dosage: 13 MILLIGRAM
     Route: 048
     Dates: start: 20100110
  5. OMEPRAZOLE [Concomitant]
     Dosage: 20 MILLIGRAM
     Dates: start: 20100701
  6. DISULONE [Concomitant]
     Indication: PROPHYLAXIS
     Route: 048
     Dates: start: 20080915
  7. TRAMADOL HCL [Concomitant]
     Route: 065
  8. FENOFIBRATE [Concomitant]
     Dosage: 200 MILLIGRAM
     Route: 048
     Dates: start: 20060101
  9. METFORMIN HCL [Concomitant]
     Dosage: 1000 MILLIGRAM
     Route: 065
     Dates: start: 20060101
  10. COLCHICINE [Suspect]
     Indication: ARTHRITIS
     Dosage: .3333 TABLET
     Route: 048
     Dates: start: 20100824
  11. NEBIVOLOL HCL [Suspect]
     Dosage: 5 MILLIGRAM
     Route: 048
     Dates: start: 20060101
  12. FOLIC ACID [Concomitant]
     Indication: INFECTION PROPHYLAXIS
     Dosage: 10 MILLIGRAM
     Route: 048
     Dates: start: 20081120, end: 20101001
  13. VALACYCLOVIR HYDROCHLORIDE [Concomitant]
     Dosage: 1000 MILLIGRAM
     Route: 048
     Dates: start: 20090223, end: 20101001
  14. OMEPRAZOLE [Concomitant]
     Dosage: 40 MILLIGRAM
  15. SPORANOX [Concomitant]
     Route: 065
  16. ACEBUTOLOL [Concomitant]
     Dosage: 200 MILLIGRAM
     Route: 048
     Dates: start: 20060101

REACTIONS (2)
  - SEPTIC SHOCK [None]
  - ORGANISING PNEUMONIA [None]
